FAERS Safety Report 6538545-0 (Version None)
Quarter: 2010Q1

REPORT INFORMATION
  Report Type: 
  Country: None (occurrence: None)
  Receive Date: 20100113
  Receipt Date: 20100113
  Transmission Date: 20100710
  Serious: Yes (Other)
  Sender: FDA-Public Use
  Company Number: None

PATIENT
  Age: 68 Year
  Sex: Male
  Weight: 88.6 kg

DRUGS (3)
  1. FLUOROURACIL [Suspect]
     Indication: COLON CANCER
     Dosage: 840 MG Q 14 DAYS IV PUSH; 5040MG OVER 46 HRS
     Route: 042
     Dates: start: 20091208, end: 20091210
  2. FLUOROURACIL [Suspect]
     Indication: COLON CANCER
     Dosage: 840 MG Q 14 DAYS IV PUSH; 5040MG OVER 46 HRS
     Route: 042
     Dates: start: 20091222, end: 20091224
  3. FLUOROURACIL [Suspect]

REACTIONS (10)
  - ALOPECIA [None]
  - DERMATITIS [None]
  - ERYTHEMA [None]
  - EYE SWELLING [None]
  - NEUROPATHY PERIPHERAL [None]
  - OEDEMA PERIPHERAL [None]
  - RASH [None]
  - SKIN EXFOLIATION [None]
  - STOMATITIS [None]
  - TEMPERATURE INTOLERANCE [None]
